FAERS Safety Report 5211677-5 (Version None)
Quarter: 2007Q1

REPORT INFORMATION
  Report Type: 
  Country: None (occurrence: None)
  Receive Date: 20070117
  Receipt Date: 20070117
  Transmission Date: 20070707
  Serious: No
  Sender: FDA-Public Use
  Company Number: None

PATIENT
  Sex: Female
  Weight: 58.9676 kg

DRUGS (2)
  1. SOTRET [Suspect]
     Indication: ACNE
     Dosage: ONE CAPSULE  2 TIMES PER DAY  PO
     Route: 048
     Dates: start: 20060515, end: 20061113
  2. SOTRET [Suspect]
     Indication: ACNE
     Dosage: ONE CAPSULE  2 TIMES PER DAY  PO
     Route: 048

REACTIONS (6)
  - ANGER [None]
  - ANXIETY [None]
  - EMOTIONAL DISORDER [None]
  - MOOD SWINGS [None]
  - PERSONALITY CHANGE [None]
  - THINKING ABNORMAL [None]
